FAERS Safety Report 17714891 (Version 1)
Quarter: 2020Q2

REPORT INFORMATION
  Report Type: Spontaneous
  Country: US (occurrence: US)
  Receive Date: 20200427
  Receipt Date: 20200427
  Transmission Date: 20200714
  Serious: Yes (Other)
  Sender: FDA-Public Use
  Company Number: US-BAYER-2020-064316

PATIENT
  Sex: Female

DRUGS (1)
  1. SKYLA [Suspect]
     Active Substance: LEVONORGESTREL
     Dosage: 14G PER DAY, CONTINUOUSLY
     Route: 015
     Dates: start: 20190612

REACTIONS (2)
  - Menorrhagia [Not Recovered/Not Resolved]
  - Genital haemorrhage [Recovered/Resolved]
